FAERS Safety Report 14490920 (Version 6)
Quarter: 2020Q3

REPORT INFORMATION
  Report Type: Spontaneous
  Country: US (occurrence: US)
  Receive Date: 20180206
  Receipt Date: 20200825
  Transmission Date: 20201102
  Serious: No
  Sender: FDA-Public Use
  Company Number: US-PFIZER INC-2018046558

PATIENT
  Age: 42 Year
  Sex: Female
  Weight: 48 kg

DRUGS (14)
  1. VITAMIN D3 [Concomitant]
     Active Substance: CHOLECALCIFEROL
     Indication: VITAMIN D DEFICIENCY
     Dosage: 2000 IU, 1X/DAY
     Route: 048
  2. CITRACAL + D [Concomitant]
     Active Substance: CALCIUM CITRATE\VITAMIN D
     Indication: BONE DISORDER
     Dosage: UNK, 1X/DAY [CALCIUM CITRATE: 630MG/ ERGOCALCIFEROL: 500IU]
     Route: 048
     Dates: start: 201510
  3. SF 5000 PLUS [Concomitant]
     Active Substance: SODIUM FLUORIDE
     Dosage: UNK
  4. CALCIUM CITRATE [Concomitant]
     Active Substance: CALCIUM CITRATE
     Dosage: UNK
  5. VITAMIN D [Concomitant]
     Active Substance: VITAMIN D NOS
     Dosage: UNK
  6. SALMON OIL [Concomitant]
     Active Substance: FISH OIL
     Dosage: UNK
  7. IBRANCE [Suspect]
     Active Substance: PALBOCICLIB
     Indication: BREAST CANCER STAGE IV
     Dosage: 125 MG, CYCLIC (ONCE DAILY, 11TH CYCLE/ONCE A DAY FOR 21 DAYS OVER 28 DAYS CYCLE)
     Route: 048
     Dates: start: 20170418
  8. FISH OIL [Concomitant]
     Active Substance: FISH OIL
     Indication: BONE DISORDER
     Dosage: 2 DF, 1X/DAY
     Route: 048
  9. FISH OIL [Concomitant]
     Active Substance: FISH OIL
     Indication: DRY EYE
  10. LETROZOLE. [Suspect]
     Active Substance: LETROZOLE
     Indication: BREAST CANCER STAGE IV
     Dosage: 2.5 MG, 1X/DAY (AT NIGHT)
     Route: 048
     Dates: start: 20170411
  11. VALACYCLOVIR [Concomitant]
     Active Substance: VALACYCLOVIR HYDROCHLORIDE
     Indication: STOMATITIS
     Dosage: 500 MG, 2X/DAY
     Route: 048
     Dates: start: 20151217
  12. KIRKLAND SIGNATURE ALLERCLEAR [Concomitant]
     Active Substance: LORATADINE
     Indication: DRUG HYPERSENSITIVITY
     Dosage: 10 MG, 1X/DAY
     Route: 048
  13. VALACYCLOVIR [Concomitant]
     Active Substance: VALACYCLOVIR HYDROCHLORIDE
     Indication: HERPES SIMPLEX
  14. XGEVA [Concomitant]
     Active Substance: DENOSUMAB
     Indication: BONE CANCER
     Dosage: UNK, EVERY 3 MONTHS[120MG/1.7ML]
     Dates: start: 20151012

REACTIONS (14)
  - Carpal tunnel syndrome [Unknown]
  - Vomiting [Unknown]
  - Sensory disturbance [Recovering/Resolving]
  - Stomatitis [Not Recovered/Not Resolved]
  - Alopecia [Not Recovered/Not Resolved]
  - Musculoskeletal stiffness [Recovering/Resolving]
  - Paraesthesia [Recovering/Resolving]
  - Condition aggravated [Not Recovered/Not Resolved]
  - Limb discomfort [Recovering/Resolving]
  - Neoplasm progression [Unknown]
  - Neuralgia [Recovering/Resolving]
  - Vertigo [Unknown]
  - Vaginal cyst [Unknown]
  - Spondylitis [Not Recovered/Not Resolved]

NARRATIVE: CASE EVENT DATE: 201704
